FAERS Safety Report 19115617 (Version 1)
Quarter: 2021Q2

REPORT INFORMATION
  Report Type: Report from Study
  Country: IT (occurrence: IT)
  Receive Date: 20210409
  Receipt Date: 20210409
  Transmission Date: 20210717
  Serious: Yes (Other)
  Sender: FDA-Public Use
  Company Number: IT-TEVA-2021-IT-1898872

PATIENT
  Age: 47 Year
  Sex: Female

DRUGS (3)
  1. OXALIPLATIN. [Suspect]
     Active Substance: OXALIPLATIN
     Route: 065
     Dates: start: 20210303
  2. CIPRALEX [Concomitant]
     Active Substance: ESCITALOPRAM OXALATE
  3. LUCEN 40 MG COMPRESSE GASTRORESISTENTI [Concomitant]

REACTIONS (4)
  - Throat tightness [Recovering/Resolving]
  - Band sensation [Recovering/Resolving]
  - Hypersensitivity [Recovering/Resolving]
  - Stridor [Recovering/Resolving]

NARRATIVE: CASE EVENT DATE: 20210303
